FAERS Safety Report 7257515-0 (Version None)
Quarter: 2011Q1

REPORT INFORMATION
  Report Type: 
  Country: None (occurrence: None)
  Receive Date: 20110129
  Receipt Date: 20100521
  Transmission Date: 20110831
  Serious: No
  Sender: FDA-Public Use
  Company Number: US-ABBOTT-10P-163-0646702-00

PATIENT
  Age: 25 Year
  Sex: Male

DRUGS (2)
  1. PENTASA [Concomitant]
     Indication: PRODUCT USED FOR UNKNOWN INDICATION
     Dosage: 4000MG DAILY
  2. HUMIRA [Suspect]
     Indication: CROHN'S DISEASE
     Dates: start: 20100429

REACTIONS (4)
  - RESPIRATORY TRACT CONGESTION [None]
  - ERECTILE DYSFUNCTION [None]
  - COUGH [None]
  - INCREASED TENDENCY TO BRUISE [None]
